FAERS Safety Report 4938480-5 (Version None)
Quarter: 2006Q1

REPORT INFORMATION
  Report Type: 
  Country: None (occurrence: None)
  Receive Date: 20060309
  Receipt Date: 20060302
  Transmission Date: 20060701
  Serious: Yes (Life-Threatening, Hospitalization)
  Sender: FDA-Public Use
  Company Number: US-BRISTOL-MYERS SQUIBB COMPANY-13301387

PATIENT
  Age: 57 Year
  Sex: Male
  Weight: 109 kg

DRUGS (2)
  1. ERBITUX [Suspect]
     Indication: COLON CANCER METASTATIC
     Dosage: 880 MG LOADING DOSE INITIATED 16-NOV-2005.  EVENT OCCURRED WITHIN 5-10 MINUTES OF INITIATION= 2 MG.
     Route: 041
     Dates: start: 20051116, end: 20051116
  2. BENADRYL [Concomitant]
     Indication: PREMEDICATION
     Dosage: ADMINISTERED 30 MINUTES PRIOR TO CETUXIMAB.
     Route: 042
     Dates: start: 20051116, end: 20051116

REACTIONS (6)
  - DYSPNOEA [None]
  - ERYTHEMA [None]
  - LOSS OF CONSCIOUSNESS [None]
  - NAUSEA [None]
  - PRURITUS [None]
  - SALIVARY HYPERSECRETION [None]
